FAERS Safety Report 25379757 (Version 1)
Quarter: 2025Q2

REPORT INFORMATION
  Report Type: Report from Study
  Country: US (occurrence: US)
  Receive Date: 20250530
  Receipt Date: 20250530
  Transmission Date: 20250717
  Serious: Yes (Other)
  Sender: AURINIA PHARMACEUTICALS
  Company Number: US-OTSUKA PHARMACEUTICAL NETHERLANDS B.V.-AUR-008895

PATIENT
  Age: 24 Year
  Sex: Female

DRUGS (1)
  1. LUPKYNIS [Suspect]
     Active Substance: VOCLOSPORIN
     Indication: Lupus nephritis
     Dosage: 23.7 MILLIGRAM, BID
     Route: 048
     Dates: start: 20221129

REACTIONS (4)
  - Vomiting [Not Recovered/Not Resolved]
  - Norovirus infection [Unknown]
  - Clostridium difficile infection [Unknown]
  - Protein-losing gastroenteropathy [Unknown]

NARRATIVE: CASE EVENT DATE: 20250401
